FAERS Safety Report 9054294 (Version 1)
Quarter: 2013Q1

REPORT INFORMATION
  Report Type: Spontaneous
  Country: CA (occurrence: CA)
  Receive Date: 20130208
  Receipt Date: 20130208
  Transmission Date: 20140127
  Serious: Yes (Other)
  Sender: FDA-Public Use
  Company Number: CA-AMGEN-CANSP2013006812

PATIENT
  Age: 56 Year
  Sex: Female

DRUGS (9)
  1. ENBREL [Suspect]
     Indication: RHEUMATOID ARTHRITIS
     Dosage: 50 UNK, UNK
     Route: 058
     Dates: start: 20121228, end: 20130124
  2. METHOTREXATE [Concomitant]
     Dosage: UNK
  3. ARTHROTEC [Concomitant]
     Dosage: UNK
  4. ZOPICLONE [Concomitant]
     Dosage: UNK
  5. TYLENOL EXTRA STRENGTH [Concomitant]
     Dosage: UNK
  6. ZOLOFT [Concomitant]
     Dosage: UNK
  7. CANDESARTAN [Concomitant]
     Dosage: UNK
  8. PMS-OMEPRAZOLE [Concomitant]
     Dosage: UNK
  9. HYDROXYCHLOROQUINE [Concomitant]
     Dosage: UNK

REACTIONS (4)
  - Depression [Recovering/Resolving]
  - Asthenia [Recovering/Resolving]
  - Mood swings [Recovering/Resolving]
  - Alopecia [Recovering/Resolving]
